FAERS Safety Report 14868638 (Version 2)
Quarter: 2019Q1

REPORT INFORMATION
  Report Type: Spontaneous
  Country: US (occurrence: US)
  Receive Date: 20180509
  Receipt Date: 20190319
  Transmission Date: 20190417
  Serious: Yes (Hospitalization, Other)
  Sender: FDA-Public Use
  Company Number: US-MACLEODS PHARMACEUTICALS US LTD-MAC2018012829

PATIENT

DRUGS (4)
  1. RISPERIDONE. [Concomitant]
     Active Substance: RISPERIDONE
     Indication: CYCLOTHYMIC DISORDER
     Dosage: 2 MILLIGRAM, 2 MG TWICE DAILY
     Route: 065
  2. HALOPERIDOL. [Concomitant]
     Active Substance: HALOPERIDOL
     Indication: MENTAL DISORDER
     Dosage: 5 MILLIGRAM
     Route: 065
  3. TRAMADOL. [Suspect]
     Active Substance: TRAMADOL
     Indication: BACK PAIN
     Dosage: UNK
     Route: 065
  4. LORAZEPAM. [Concomitant]
     Active Substance: LORAZEPAM
     Indication: MENTAL DISORDER
     Dosage: 2 MILLIGRAM
     Route: 065

REACTIONS (2)
  - Mania [Recovered/Resolved]
  - Suicidal ideation [Recovered/Resolved]
